FAERS Safety Report 15401227 (Version 2)
Quarter: 2018Q4

REPORT INFORMATION
  Report Type: Report from Study
  Country: US (occurrence: US)
  Receive Date: 20180919
  Receipt Date: 20181019
  Transmission Date: 20190204
  Serious: Yes (Hospitalization, Other)
  Sender: FDA-Public Use
  Company Number: US-GILEAD-2018-0362935

PATIENT
  Age: 40 Year
  Sex: Female

DRUGS (19)
  1. NORCO [Concomitant]
     Active Substance: ACETAMINOPHEN\HYDROCODONE BITARTRATE
  2. VOLTAREN [Concomitant]
     Active Substance: DICLOFENAC SODIUM
  3. TRAMADOL. [Concomitant]
     Active Substance: TRAMADOL
  4. POTASSIUM CHLORIDE. [Concomitant]
     Active Substance: POTASSIUM CHLORIDE
  5. MIRALAX [Concomitant]
     Active Substance: POLYETHYLENE GLYCOL 3350
  6. ALENDRONATE [Concomitant]
     Active Substance: ALENDRONATE SODIUM
  7. FOLIC ACID. [Concomitant]
     Active Substance: FOLIC ACID
  8. SUCRALFATE. [Concomitant]
     Active Substance: SUCRALFATE
  9. MIDODRINE [Concomitant]
     Active Substance: MIDODRINE
  10. PREDNISONE. [Concomitant]
     Active Substance: PREDNISONE
  11. TRIAMCINOLONE                      /00031902/ [Concomitant]
     Active Substance: TRIAMCINOLONE ACETONIDE
  12. FLOLAN [Concomitant]
     Active Substance: EPOPROSTENOL SODIUM
  13. AMBRISENTAN [Suspect]
     Active Substance: AMBRISENTAN
     Indication: PULMONARY ARTERIAL HYPERTENSION
     Dosage: 5 MG, QD
     Route: 048
     Dates: start: 201808, end: 201809
  14. SPIRONOLACTONE. [Concomitant]
     Active Substance: SPIRONOLACTONE
  15. FAMOTIDINE. [Concomitant]
     Active Substance: FAMOTIDINE
  16. VITAMIN D3 [Concomitant]
     Active Substance: CHOLECALCIFEROL
  17. FUROSEMIDE. [Concomitant]
     Active Substance: FUROSEMIDE
  18. HYDROXYCHLOROQUINE [Concomitant]
     Active Substance: HYDROXYCHLOROQUINE
  19. METOLAZONE. [Concomitant]
     Active Substance: METOLAZONE

REACTIONS (3)
  - Paracentesis [Unknown]
  - Post procedural discharge [Recovered/Resolved]
  - Fluid overload [Unknown]
